FAERS Safety Report 25452455 (Version 1)
Quarter: 2025Q2

REPORT INFORMATION
  Report Type: Spontaneous
  Country: AT (occurrence: AT)
  Receive Date: 20250618
  Receipt Date: 20250618
  Transmission Date: 20250717
  Serious: Yes (Death)
  Sender: AMGEN
  Company Number: AT-AMGEN-AUTSP2025115646

PATIENT

DRUGS (2)
  1. EVOLOCUMAB [Suspect]
     Active Substance: EVOLOCUMAB
     Indication: Low density lipoprotein
     Dosage: 140 MILLIGRAM, Q2WK
     Route: 065
  2. ALIROCUMAB [Concomitant]
     Active Substance: ALIROCUMAB
     Indication: Low density lipoprotein
     Route: 065

REACTIONS (9)
  - Death [Fatal]
  - Arteriosclerosis [Fatal]
  - Cardiovascular disorder [Unknown]
  - Drug intolerance [Unknown]
  - Drug ineffective [Unknown]
  - Lipoprotein increased [Unknown]
  - Dermatitis allergic [Unknown]
  - Vertigo [Unknown]
  - Arthralgia [Unknown]
